FAERS Safety Report 24391627 (Version 2)
Quarter: 2024Q4

REPORT INFORMATION
  Report Type: Spontaneous
  Country: US (occurrence: US)
  Receive Date: 20241003
  Receipt Date: 20241022
  Transmission Date: 20250114
  Serious: No
  Sender: SANOFI AVENTIS
  Company Number: US-SA-2024SA280028

PATIENT
  Age: 55 Year
  Sex: Female

DRUGS (1)
  1. DUPIXENT [Suspect]
     Active Substance: DUPILUMAB
     Indication: Asthma
     Dosage: 300 MG, QOW
     Route: 058
     Dates: start: 202408

REACTIONS (10)
  - Dyspnoea [Unknown]
  - Illness [Unknown]
  - Headache [Unknown]
  - Diarrhoea [Unknown]
  - Chills [Unknown]
  - Vomiting [Unknown]
  - Laryngitis [Unknown]
  - Asthenia [Unknown]
  - Oropharyngeal pain [Unknown]
  - Sinus operation [Unknown]

NARRATIVE: CASE EVENT DATE: 20240101
